FAERS Safety Report 16323384 (Version 1)
Quarter: 2019Q2

REPORT INFORMATION
  Report Type: Spontaneous
  Country: US (occurrence: US)
  Receive Date: 20190517
  Receipt Date: 20190517
  Transmission Date: 20190711
  Serious: Yes (Other)
  Sender: FDA-Public Use
  Company Number: US-009507513-1905USA006307

PATIENT
  Age: 49 Year
  Sex: Male
  Weight: 68.8 kg

DRUGS (10)
  1. DECADRON [Suspect]
     Active Substance: DEXAMETHASONE
     Indication: SPINAL LAMINECTOMY
     Dosage: 10 MILLIGRAM, QD
     Route: 042
     Dates: start: 20161222, end: 20161222
  2. DECADRON [Suspect]
     Active Substance: DEXAMETHASONE
     Dosage: 4 MILLIGRAM, Q6H
     Route: 048
     Dates: start: 20161222
  3. DECADRON [Suspect]
     Active Substance: DEXAMETHASONE
     Dosage: 1 MILLIGRAM, Q12H
     Route: 048
     Dates: start: 20161227
  4. DECADRON [Suspect]
     Active Substance: DEXAMETHASONE
     Dosage: 1 MILLIGRAM, QD
     Route: 048
     Dates: start: 20161228
  5. DILAUDID [Concomitant]
     Active Substance: HYDROMORPHONE HYDROCHLORIDE
     Dosage: UNK
     Dates: start: 20161205
  6. MS CONTIN [Concomitant]
     Active Substance: MORPHINE SULFATE
     Dosage: UNK
     Dates: start: 20161205
  7. KEYTRUDA [Suspect]
     Active Substance: PEMBROLIZUMAB
     Indication: PROPHYLAXIS
     Dosage: 125 MILLIGRAM, QD
     Route: 042
     Dates: start: 20170222, end: 20170222
  8. LAG525 [Suspect]
     Active Substance: IERAMILIMAB
     Dosage: 15 MILLIGRAM/KILOGRAM, ONCE A YEAR, INFUSION
     Dates: start: 20170222
  9. LAG525 [Suspect]
     Active Substance: IERAMILIMAB
     Indication: NEOPLASM MALIGNANT
     Dosage: 15 MILLIGRAM/KILOGRAM, ONCE A YEAR, INFUSION
     Dates: start: 20160203, end: 20161221
  10. DECADRON [Suspect]
     Active Substance: DEXAMETHASONE
     Dosage: 2 MILLIGRAM, Q6H
     Route: 048
     Dates: start: 20161225

REACTIONS (2)
  - Atrial tachycardia [Recovered/Resolved]
  - Tumour lysis syndrome [Not Recovered/Not Resolved]

NARRATIVE: CASE EVENT DATE: 20170223
